FAERS Safety Report 7278222-4 (Version None)
Quarter: 2010Q4

REPORT INFORMATION
  Report Type: 
  Country: None (occurrence: None)
  Receive Date: 20101206
  Receipt Date: 20101027
  Transmission Date: 20110411
  Serious: No
  Sender: FDA-Public Use
  Company Number: 2010SP057600

PATIENT
  Age: 44 Year
  Sex: Female

DRUGS (1)
  1. SAPHRIS [Suspect]
     Indication: SCHIZOPHRENIA
     Dosage: 5 MG;BID;SL
     Route: 060

REACTIONS (1)
  - HYPOAESTHESIA ORAL [None]
